FAERS Safety Report 5350425-5 (Version None)
Quarter: 2007Q2

REPORT INFORMATION
  Report Type: 
  Country: None (occurrence: None)
  Receive Date: 20070608
  Receipt Date: 20070601
  Transmission Date: 20071010
  Serious: Yes (Hospitalization)
  Sender: FDA-Public Use
  Company Number: DEWYE774501JUN07

PATIENT
  Age: 18 Month
  Sex: Female
  Weight: 12 kg

DRUGS (1)
  1. VENLAFAXINE HCL [Suspect]
     Dosage: 1 TABLET (75 MG)
     Route: 048
     Dates: start: 20070601, end: 20070601

REACTIONS (2)
  - ACCIDENTAL DRUG INTAKE BY CHILD [None]
  - ACCIDENTAL OVERDOSE [None]
